FAERS Safety Report 9329097 (Version 1)
Quarter: 2013Q2

REPORT INFORMATION
  Report Type: Spontaneous
  Country: US (occurrence: US)
  Receive Date: 20130604
  Receipt Date: 20130604
  Transmission Date: 20140414
  Serious: Yes (Hospitalization)
  Sender: FDA-Public Use
  Company Number: US-SANOFI-AVENTIS-2013SA022495

PATIENT
  Sex: Male

DRUGS (2)
  1. LANTUS SOLOSTAR [Suspect]
     Dates: start: 201302
  2. SOLOSTAR [Suspect]
     Dates: start: 201302

REACTIONS (2)
  - Blood glucose decreased [Unknown]
  - Hyperhidrosis [Unknown]
